FAERS Safety Report 4578267-9 (Version None)
Quarter: 2005Q1

REPORT INFORMATION
  Report Type: 
  Country: None (occurrence: None)
  Receive Date: 20050201
  Receipt Date: 20050201
  Transmission Date: 20050727
  Serious: Yes (Death, Hospitalization)
  Sender: FDA-Public Use
  Company Number: None

PATIENT
  Age: 82 Year
  Sex: Female
  Weight: 66 kg

DRUGS (5)
  1. CARBOPLATIN [Suspect]
     Indication: ENDOMETRIAL CANCER
     Dosage: AUC 2 WEEKLY  IV
     Route: 042
     Dates: start: 20040629, end: 20041217
  2. PACLITAXEL [Suspect]
     Dosage: 80 MG/M2 WEEKLY  ; 60MG/M2 WEEKLY IV
     Route: 042
     Dates: start: 20040629, end: 20040908
  3. PACLITAXEL [Suspect]
     Dosage: 80 MG/M2 WEEKLY  ; 60MG/M2 WEEKLY IV
     Route: 042
     Dates: start: 20040923, end: 20041217
  4. TOPROL-XL [Concomitant]
  5. K-DUR 10 [Concomitant]

REACTIONS (5)
  - ASTHENIA [None]
  - DEHYDRATION [None]
  - FAILURE TO THRIVE [None]
  - NAUSEA [None]
  - VOMITING [None]
